FAERS Safety Report 6261957-X (Version None)
Quarter: 2009Q3

REPORT INFORMATION
  Report Type: 
  Country: None (occurrence: None)
  Receive Date: 20090709
  Receipt Date: 20090304
  Transmission Date: 20100115
  Serious: Yes (Hospitalization)
  Sender: FDA-Public Use
  Company Number: B0582848A

PATIENT
  Age: 65 Year
  Sex: Female
  Weight: 76 kg

DRUGS (7)
  1. OMACOR [Suspect]
     Dosage: 1000MG PER DAY
     Route: 048
     Dates: start: 20050727, end: 20060703
  2. ACE INHIBITOR [Concomitant]
  3. STATINS [Concomitant]
  4. DIURETIC [Concomitant]
  5. CALCIUM CHANNEL BLOCKER [Concomitant]
  6. AMIODARONE HCL [Concomitant]
  7. PHENPROCOUMON [Concomitant]

REACTIONS (1)
  - ANGINA PECTORIS [None]
